FAERS Safety Report 17599546 (Version 3)
Quarter: 2020Q2

REPORT INFORMATION
  Report Type: Spontaneous
  Country: AT (occurrence: AT)
  Receive Date: 20200330
  Receipt Date: 20200416
  Transmission Date: 20200713
  Serious: Yes (Other)
  Sender: FDA-Public Use
  Company Number: AT-B.I. PHARMACEUTICALS,INC./RIDGEFIELD-2020-BI-016483

PATIENT
  Age: 52 Year
  Sex: Female

DRUGS (3)
  1. GILOTRIF [Suspect]
     Active Substance: AFATINIB
     Indication: LUNG ADENOCARCINOMA STAGE III
     Route: 048
     Dates: start: 201512
  2. GILOTRIF [Suspect]
     Active Substance: AFATINIB
     Route: 065
     Dates: start: 201606
  3. GILOTRIF [Suspect]
     Active Substance: AFATINIB
     Indication: EGFR GENE MUTATION
     Route: 065

REACTIONS (6)
  - Malignant neoplasm progression [Unknown]
  - Skin fissures [Unknown]
  - Pruritus [Unknown]
  - Paronychia [Unknown]
  - Metastases to bone [Unknown]
  - Body temperature [Unknown]

NARRATIVE: CASE EVENT DATE: 2016
